FAERS Safety Report 15758650 (Version 1)
Quarter: 2018Q4

REPORT INFORMATION
  Report Type: Spontaneous
  Country: FR (occurrence: FR)
  Receive Date: 20181225
  Receipt Date: 20181225
  Transmission Date: 20190205
  Serious: Yes (Hospitalization)
  Sender: FDA-Public Use
  Company Number: FR-ALLERGAN-1859242US

PATIENT
  Age: 84 Year
  Sex: Male
  Weight: 62.3 kg

DRUGS (11)
  1. LASILIX [Concomitant]
     Active Substance: FUROSEMIDE
     Route: 065
  2. KARDEGIC [Suspect]
     Active Substance: ASPIRIN DL-LYSINE
     Indication: CEREBROVASCULAR ACCIDENT PROPHYLAXIS
     Dosage: 1 DF, QD
     Route: 048
     Dates: start: 2014
  3. TENORDATE [Concomitant]
     Active Substance: ATENOLOL\NIFEDIPINE
     Route: 065
  4. ESCITALOPRAM OXALATE - BP [Suspect]
     Active Substance: ESCITALOPRAM OXALATE
     Indication: DEPRESSION
     Dosage: 10 DF, QD
     Route: 048
     Dates: start: 20180405, end: 20181120
  5. OMEXEL [Concomitant]
     Active Substance: TAMSULOSIN HYDROCHLORIDE
     Route: 065
  6. CANDESARTAN CILEXETIL. [Concomitant]
     Active Substance: CANDESARTAN CILEXETIL
     Route: 065
  7. SEEBRI BREEZHALER [Concomitant]
     Active Substance: GLYCOPYRROLATE
     Route: 065
  8. AVODART [Concomitant]
     Active Substance: DUTASTERIDE
     Route: 065
  9. IMOVANE [Concomitant]
     Active Substance: ZOPICLONE
     Route: 065
  10. SPIRONOLACTONE. [Concomitant]
     Active Substance: SPIRONOLACTONE
     Route: 065
  11. SERESTA [Concomitant]
     Active Substance: OXAZEPAM
     Route: 065

REACTIONS (2)
  - Incorrect dose administered [Unknown]
  - Cerebral haemorrhage [Not Recovered/Not Resolved]

NARRATIVE: CASE EVENT DATE: 20181116
